FAERS Safety Report 5850759-1 (Version None)
Quarter: 2008Q3

REPORT INFORMATION
  Report Type: 
  Country: None (occurrence: None)
  Receive Date: 20080818
  Receipt Date: 20080806
  Transmission Date: 20090109
  Serious: Yes (Hospitalization)
  Sender: FDA-Public Use
  Company Number: 2008-02660

PATIENT
  Age: 55 Year
  Sex: Male
  Weight: 65.6 kg

DRUGS (1)
  1. VELCADE [Suspect]
     Indication: MULTIPLE MYELOMA
     Dosage: 2.36 MG
     Dates: start: 20061106

REACTIONS (1)
  - HERPES ZOSTER DISSEMINATED [None]
